FAERS Safety Report 9787107 (Version 2)
Quarter: 2014Q1

REPORT INFORMATION
  Report Type: Spontaneous
  Country: AU (occurrence: AU)
  Receive Date: 20131228
  Receipt Date: 20140115
  Transmission Date: 20141002
  Serious: Yes (Other)
  Sender: FDA-Public Use
  Company Number: AU-ROCHE-1324212

PATIENT
  Age: 44 Year
  Sex: Female

DRUGS (6)
  1. HERCEPTIN [Suspect]
     Indication: HER-2 POSITIVE BREAST CANCER
     Dosage: TOTAL 9 MONTHS OF THERAPY
     Route: 065
  2. TRASTUZUMAB EMTANSINE [Suspect]
     Indication: HER-2 POSITIVE BREAST CANCER
     Dosage: DOSE REDUCED AFTYER 2 CYCLES, THERAPY FOR 1 YEAR
     Route: 042
  3. CAPECITABINE [Concomitant]
     Indication: HER-2 POSITIVE BREAST CANCER
     Route: 065
  4. DOCETAXEL [Concomitant]
     Indication: HER-2 POSITIVE BREAST CANCER
     Route: 065
  5. VINORELBINE [Concomitant]
     Indication: HER-2 POSITIVE BREAST CANCER
     Dosage: TOTAL 9 MONTHS OF THERAPY
     Route: 065
  6. LAPATINIB [Concomitant]
     Indication: HER-2 POSITIVE BREAST CANCER

REACTIONS (4)
  - Disease progression [Unknown]
  - Thrombocytopenia [Unknown]
  - Pruritus [Recovered/Resolved]
  - Insomnia [Unknown]
